FAERS Safety Report 9196625 (Version 1)
Quarter: 2013Q1

REPORT INFORMATION
  Report Type: Spontaneous
  Country: US (occurrence: None)
  Receive Date: 20120709
  Receipt Date: 20120709
  Transmission Date: 20140127
  Serious: Yes (Other)
  Sender: FDA-Public Use
  Company Number: PHEH2011US00528

PATIENT
  Age: 67 Year
  Sex: Male
  Weight: 98.4 kg

DRUGS (11)
  1. GLEEVEC [Suspect]
     Indication: CHRONIC MYELOID LEUKAEMIA
     Route: 048
     Dates: start: 20110708
  2. DIOVAN HCT 320/12.5MG (HYDROCHLOROTHIAZIDE, VALSARTAN),320/12.5 MG [Concomitant]
  3. ASA LOW DOSE (ACETLYSALICYLIC ACID)TABLET [Concomitant]
  4. FERROUS SULFATE (FERROUS SULFATE) TABLET [Concomitant]
  5. FISH OIL (FISH OIL) [Concomitant]
  6. VITAMIN D (ERGOCALCIFEROL) [Concomitant]
  7. PLAVIX (CLOPIDOGREL SULFATE) [Concomitant]
  8. PRAVASTATIN (PRAVASTATIN) [Concomitant]
  9. GRAPE SEED EXTRACT (VITIS VINIFERA EXTRACT) [Concomitant]
  10. ZANTAC (RANTIDINE HYDROCHLORIDE) [Concomitant]
  11. ASPIRIN (ACETYLSALICYLIC ACID) [Concomitant]

REACTIONS (9)
  - Eosinophilia [None]
  - Neuralgia [None]
  - Skin discolouration [None]
  - Fatigue [None]
  - Rash maculo-papular [None]
  - Fluid retention [None]
  - Weight increased [None]
  - Rash erythematous [None]
  - Rash pruritic [None]
